FAERS Safety Report 5916444-2 (Version None)
Quarter: 2008Q4

REPORT INFORMATION
  Report Type: 
  Country: None (occurrence: None)
  Receive Date: 20081013
  Receipt Date: 20081008
  Transmission Date: 20090506
  Serious: Yes (Hospitalization)
  Sender: FDA-Public Use
  Company Number: BR-AVENTIS-200817030GDDC

PATIENT
  Age: 19 Year
  Sex: Male
  Weight: 55 kg

DRUGS (8)
  1. LANTUS [Suspect]
     Indication: TYPE 1 DIABETES MELLITUS
     Route: 058
     Dates: start: 20030101, end: 20050101
  2. LANTUS [Suspect]
     Dosage: DOSE: 40-42
     Route: 058
     Dates: start: 20080101
  3. TEGRETOL [Concomitant]
     Route: 048
  4. BACLOFEN [Concomitant]
     Route: 048
  5. PROPRANOLOL [Concomitant]
  6. DEPAKENE                           /00228501/ [Concomitant]
  7. RIVOTRIL [Concomitant]
  8. LIORESAL [Concomitant]

REACTIONS (3)
  - IMMUNE SYSTEM DISORDER [None]
  - PHARYNGITIS [None]
  - PNEUMONIA [None]
